FAERS Safety Report 17594292 (Version 1)
Quarter: 2020Q1

REPORT INFORMATION
  Report Type: Spontaneous
  Country: CA (occurrence: CA)
  Receive Date: 20200327
  Receipt Date: 20200327
  Transmission Date: 20200409
  Serious: Yes (Other)
  Sender: FDA-Public Use
  Company Number: CA-ACTELION-A-NJ2019-198241

PATIENT
  Sex: Female

DRUGS (11)
  1. FUROSEMIDE. [Concomitant]
     Active Substance: FUROSEMIDE
  2. ASCORBIC ACID. [Concomitant]
     Active Substance: ASCORBIC ACID
  3. SYNTHROID [Concomitant]
     Active Substance: LEVOTHYROXINE SODIUM
  4. TRACLEER [Suspect]
     Active Substance: BOSENTAN
     Indication: PULMONARY ARTERIAL HYPERTENSION
     Dosage: 125 MG, QD
     Route: 048
     Dates: start: 20190930
  5. ASA [Concomitant]
     Active Substance: ASPIRIN
  6. VIT D [Concomitant]
     Active Substance: VITAMIN D NOS
  7. POLYSACCHARIDE IRON [Concomitant]
  8. IRON [Concomitant]
     Active Substance: IRON
  9. REVATIO [Concomitant]
     Active Substance: SILDENAFIL CITRATE
  10. POTASSIUM [Concomitant]
     Active Substance: POTASSIUM
  11. SALBUTAMOL [Concomitant]
     Active Substance: ALBUTEROL

REACTIONS (1)
  - Renal disorder [Unknown]
